FAERS Safety Report 23467351 (Version 3)
Quarter: 2024Q3

REPORT INFORMATION
  Report Type: Spontaneous
  Country: PY (occurrence: PY)
  Receive Date: 20240201
  Receipt Date: 20240925
  Transmission Date: 20241017
  Serious: Yes (Death, Hospitalization)
  Sender: VIFOR
  Company Number: PY-ROCHE-3495389

PATIENT
  Age: 69 Year
  Sex: Female

DRUGS (1)
  1. MIRCERA [Suspect]
     Active Substance: METHOXY POLYETHYLENE GLYCOL-EPOETIN BETA
     Indication: Nephrogenic anaemia
     Dosage: DOSE- 100 MCG/0.3ML
     Route: 058
     Dates: start: 20230916

REACTIONS (2)
  - Neoplasm malignant [Fatal]
  - Infection [Recovered/Resolved]

NARRATIVE: CASE EVENT DATE: 20240108
